FAERS Safety Report 10695229 (Version 1)
Quarter: 2015Q1

REPORT INFORMATION
  Report Type: Spontaneous
  Country: US (occurrence: US)
  Receive Date: 20150107
  Receipt Date: 20150107
  Transmission Date: 20150721
  Serious: No
  Sender: FDA-Public Use
  Company Number: US-B.I. PHARMACEUTICALS,INC./RIDGEFIELD-2014-BI-62619BP

PATIENT
  Sex: Male
  Weight: 115.67 kg

DRUGS (1)
  1. PRADAXA [Suspect]
     Active Substance: DABIGATRAN ETEXILATE MESYLATE
     Indication: PRODUCT USED FOR UNKNOWN INDICATION
     Dosage: 300 MG
     Route: 048
     Dates: start: 2012

REACTIONS (4)
  - Urinary tract infection [Recovered/Resolved]
  - Prostatic specific antigen increased [Recovered/Resolved]
  - Throat lesion [Recovered/Resolved]
  - Jaw cyst [Recovered/Resolved]

NARRATIVE: CASE EVENT DATE: 2014
